FAERS Safety Report 26070407 (Version 1)
Quarter: 2025Q4

REPORT INFORMATION
  Report Type: Spontaneous
  Country: US (occurrence: None)
  Receive Date: 20251120
  Receipt Date: 20251120
  Transmission Date: 20260118
  Serious: Yes (Other)
  Sender: FDA-CTU
  Company Number: None

PATIENT
  Age: 63 Year
  Sex: Male

DRUGS (1)
  1. REPATHA [Suspect]
     Active Substance: EVOLOCUMAB
     Indication: Arteriosclerosis coronary artery
     Dosage: OTHER FREQUENCY : EVERY OTHER WEEK;?
     Route: 058
     Dates: start: 20250901, end: 20251118

REACTIONS (2)
  - Peripheral swelling [None]
  - Abdominal distension [None]

NARRATIVE: CASE EVENT DATE: 20251117
